FAERS Safety Report 4783569-7 (Version None)
Quarter: 2005Q3

REPORT INFORMATION
  Report Type: 
  Country: None (occurrence: None)
  Receive Date: 20050929
  Receipt Date: 20050920
  Transmission Date: 20060218
  Serious: Yes (Life-Threatening)
  Sender: FDA-Public Use
  Company Number: PHRM2005FR02493

PATIENT
  Age: 74 Year
  Sex: Male
  Weight: 116 kg

DRUGS (1)
  1. GLEEVEC [Suspect]
     Indication: CHRONIC MYELOID LEUKAEMIA
     Dosage: 400 MG DAILY
     Route: 048
     Dates: start: 20020515

REACTIONS (4)
  - AXILLARY PAIN [None]
  - BLADDER CANCER [None]
  - BLADDER NEOPLASM SURGERY [None]
  - HAEMATURIA [None]
